FAERS Safety Report 5849944-4 (Version None)
Quarter: 2008Q3

REPORT INFORMATION
  Report Type: 
  Country: None (occurrence: None)
  Receive Date: 20080819
  Receipt Date: 20070629
  Transmission Date: 20090109
  Serious: Yes (Other)
  Sender: FDA-Public Use
  Company Number: IT-ROCHE-571280

PATIENT
  Sex: Male
  Weight: 83 kg

DRUGS (2)
  1. PEGASYS [Suspect]
     Dosage: STRENGHT: 180.
     Route: 065
     Dates: start: 20051103, end: 20060115
  2. RIBAVIRIN [Suspect]
     Route: 065
     Dates: start: 20051103, end: 20060115

REACTIONS (1)
  - SERUM FERRITIN INCREASED [None]
